FAERS Safety Report 6762553-8 (Version None)
Quarter: 2010Q2

REPORT INFORMATION
  Report Type: 
  Country: None (occurrence: None)
  Receive Date: 20100609
  Receipt Date: 20100603
  Transmission Date: 20101027
  Serious: Yes (Life-Threatening, Hospitalization)
  Sender: FDA-Public Use
  Company Number: RU-PFIZER INC-2010069793

PATIENT
  Age: 31 Year
  Sex: Female
  Weight: 62 kg

DRUGS (11)
  1. VORICONAZOLE [Suspect]
     Indication: ASPERGILLOSIS
     Dosage: 268 MG, 2X/DAY
     Route: 042
     Dates: start: 20100525, end: 20100603
  2. *PLACEBO [Suspect]
     Indication: ASPERGILLOSIS
     Dosage: UNK
     Route: 042
     Dates: start: 20100525, end: 20100603
  3. IMIPENEM [Concomitant]
     Indication: PYREXIA
     Dosage: 2 G, 4X/DAY
     Route: 042
     Dates: start: 20100515
  4. AMIKACIN [Concomitant]
     Indication: PYREXIA
     Dosage: 1 G, 1X/DAY
     Route: 042
     Dates: start: 20100517, end: 20100527
  5. VANCOMYCIN [Concomitant]
     Dosage: 2 G, 2X/DAY
     Route: 042
     Dates: start: 20100528, end: 20100601
  6. METRONIDAZOLE [Concomitant]
     Indication: MUCOSAL INFLAMMATION
     Dosage: 1500 MG, 3X/DAY
     Route: 042
     Dates: start: 20100531
  7. ZOVIRAX [Concomitant]
     Indication: ANTIVIRAL TREATMENT
     Dosage: 1250 MG, 3X/DAY
     Route: 042
     Dates: start: 20100518, end: 20100524
  8. DIFLUCAN [Concomitant]
     Indication: ANTIFUNGAL TREATMENT
     Dosage: 400 MG, 1X/DAY
     Route: 042
     Dates: start: 20100518, end: 20100524
  9. ZYVOX [Concomitant]
     Dosage: 1200 MG, 2X/DAY
     Route: 042
     Dates: start: 20100601
  10. ALBUMIN HUMAN [Concomitant]
     Dosage: 50 ML, 1X/DAY
     Route: 042
     Dates: start: 20100528
  11. KABIVEN [Concomitant]
     Indication: PARENTERAL NUTRITION
     Dosage: 1920 ML
     Route: 042
     Dates: start: 20100526

REACTIONS (1)
  - PNEUMONIA [None]
